FAERS Safety Report 4520214-X (Version None)
Quarter: 2004Q4

REPORT INFORMATION
  Report Type: 
  Country: None (occurrence: None)
  Receive Date: 20041201
  Receipt Date: 20041201
  Transmission Date: 20050328
  Serious: Yes (Hospitalization)
  Sender: FDA-Public Use
  Company Number: None

PATIENT
  Sex: Male
  Weight: 100 kg

DRUGS (9)
  1. DARBEPOETIN ALFA [Suspect]
     Indication: ANAEMIA
     Dosage: 9 MCG/KG  (900 MCG SC 1X WKLY)
     Route: 058
     Dates: start: 20040609, end: 20040825
  2. DARBEPOETIN ALFA [Suspect]
     Indication: MYELODYSPLASTIC SYNDROME
     Dosage: 9 MCG/KG  (900 MCG SC 1X WKLY)
     Route: 058
     Dates: start: 20040609, end: 20040825
  3. GROWTH COLONY STIMULATING FACTOR (G-CSF) [Suspect]
     Indication: ANAEMIA
     Dosage: 2.5 MCG/KG (250 MCG SC 2X WKLY)
     Route: 058
     Dates: start: 20040721, end: 20040828
  4. GROWTH COLONY STIMULATING FACTOR (G-CSF) [Suspect]
     Indication: MYELODYSPLASTIC SYNDROME
     Dosage: 2.5 MCG/KG (250 MCG SC 2X WKLY)
     Route: 058
     Dates: start: 20040721, end: 20040828
  5. PREDNISONE [Concomitant]
  6. EFFEXOR [Concomitant]
  7. DICLOFENAC [Concomitant]
  8. ANDROGEN [Concomitant]
  9. DILTIAZEM [Concomitant]

REACTIONS (1)
  - SUPRAVENTRICULAR TACHYCARDIA [None]
